FAERS Safety Report 9157590 (Version 2)
Quarter: 2014Q1

REPORT INFORMATION
  Report Type: Spontaneous
  Country: GB (occurrence: None)
  Receive Date: 20130215
  Receipt Date: 20140214
  Transmission Date: 20141002
  Serious: Yes (Other)
  Sender: FDA-Public Use
  Company Number: 2013AP002409

PATIENT
  Sex: Female

DRUGS (3)
  1. CITALOPRAM (CITALOPRAM) [Suspect]
  2. LORAZEPAM (LORAZEPAM) [Suspect]
  3. TEMAZEPAM (TEMAZEPAM) [Suspect]

REACTIONS (7)
  - Anxiety [None]
  - Drug interaction [None]
  - Incorrect dose administered [None]
  - Insomnia [None]
  - Medication error [None]
  - Somnolence [None]
  - Hyperhidrosis [None]
